FAERS Safety Report 21928677 (Version 1)
Quarter: 2023Q1

REPORT INFORMATION
  Report Type: Spontaneous
  Country: US (occurrence: US)
  Receive Date: 20230130
  Receipt Date: 20230130
  Transmission Date: 20230417
  Serious: Yes (Hospitalization, Other)
  Sender: FDA-Public Use
  Company Number: US-BRISTOL-MYERS SQUIBB COMPANY-2023-012693

PATIENT
  Age: 80 Year
  Sex: Female

DRUGS (1)
  1. REVLIMID [Suspect]
     Active Substance: LENALIDOMIDE
     Indication: Plasma cell myeloma
     Dosage: FREQUENCY:  TAKE 1 CAPSULE BY MOUTH EVERY OTHER DAY ON DAYS 1-21 OF EACH 28-DAY CYCLE.
     Route: 048
     Dates: start: 20220909

REACTIONS (2)
  - Pneumonia [Unknown]
  - Renal failure [Unknown]
